FAERS Safety Report 7728324-0 (Version None)
Quarter: 2011Q3

REPORT INFORMATION
  Report Type: 
  Country: None (occurrence: None)
  Receive Date: 20110905
  Receipt Date: 20110831
  Transmission Date: 20111222
  Serious: Yes (Other)
  Sender: FDA-Public Use
  Company Number: PHEH2009US00488

PATIENT
  Sex: Male

DRUGS (12)
  1. ATIVAN [Concomitant]
  2. AREDIA [Suspect]
     Indication: BONE LOSS
  3. PROCRIT [Concomitant]
  4. EFFEXOR [Concomitant]
  5. REMERON [Concomitant]
  6. SEROQUEL [Concomitant]
  7. ASPIRIN [Concomitant]
  8. ZOMETA [Suspect]
     Indication: OSTEOPOROSIS
  9. AREDIA [Suspect]
     Indication: OSTEOPOROSIS
  10. CARTIA XT [Concomitant]
  11. ZOMETA [Suspect]
     Indication: BONE LOSS
  12. COUMADIN [Concomitant]

REACTIONS (25)
  - ACTINIC KERATOSIS [None]
  - GASTRITIS [None]
  - BASOSQUAMOUS CARCINOMA [None]
  - INJURY [None]
  - ATELECTASIS [None]
  - PAIN [None]
  - HYPERTENSION [None]
  - PLEURAL EFFUSION [None]
  - NEOPLASM MALIGNANT [None]
  - MULTIPLE MYELOMA [None]
  - ANXIETY [None]
  - RENAL FAILURE [None]
  - DIVERTICULUM INTESTINAL [None]
  - IRON DEFICIENCY ANAEMIA [None]
  - OSTEONECROSIS OF JAW [None]
  - GENERAL PHYSICAL HEALTH DETERIORATION [None]
  - DEPRESSION [None]
  - SPINAL OSTEOARTHRITIS [None]
  - INTERVERTEBRAL DISC PROTRUSION [None]
  - COMPRESSION FRACTURE [None]
  - RESPIRATORY FAILURE [None]
  - RECTAL HAEMORRHAGE [None]
  - PNEUMONIA [None]
  - PAPULE [None]
  - RENAL CYST [None]
